FAERS Safety Report 5015656-2 (Version None)
Quarter: 2006Q2

REPORT INFORMATION
  Report Type: 
  Country: None (occurrence: None)
  Receive Date: 20060601
  Receipt Date: 20060526
  Transmission Date: 20061013
  Serious: Yes (Other)
  Sender: FDA-Public Use
  Company Number: BR-GLAXOSMITHKLINE-A0607449A

PATIENT
  Age: 2 Year
  Sex: Female
  Weight: 16.9 kg

DRUGS (2)
  1. CLAVULIN [Suspect]
     Route: 048
     Dates: start: 20060520
  2. SODIUM CHLORIDE [Concomitant]
     Dates: start: 20060512

REACTIONS (1)
  - DIARRHOEA HAEMORRHAGIC [None]
